FAERS Safety Report 16315311 (Version 3)
Quarter: 2019Q2

REPORT INFORMATION
  Report Type: Spontaneous
  Country: US (occurrence: US)
  Receive Date: 20190515
  Receipt Date: 20190527
  Transmission Date: 20190711
  Serious: Yes (Other)
  Sender: FDA-Public Use
  Company Number: US-SA-2019SA124104

PATIENT
  Age: 62 Year
  Sex: Female

DRUGS (3)
  1. AUBAGIO [Suspect]
     Active Substance: TERIFLUNOMIDE
     Dosage: UNK UNK, QD
     Route: 048
     Dates: start: 201904
  2. ESCITALOPRAM [Concomitant]
     Active Substance: ESCITALOPRAM OXALATE
     Dosage: UNK
     Dates: start: 20190218
  3. AMLODIPINE [Concomitant]
     Active Substance: AMLODIPINE BESYLATE
     Dosage: UNK
     Dates: start: 20190218

REACTIONS (10)
  - Balance disorder [Unknown]
  - Abdominal discomfort [Unknown]
  - Alopecia [Unknown]
  - Blood glucose increased [Unknown]
  - Memory impairment [Unknown]
  - Diabetes mellitus [Unknown]
  - Hypersomnia [Unknown]
  - Dizziness [Unknown]
  - Platelet count increased [Unknown]
  - Fatigue [Unknown]

NARRATIVE: CASE EVENT DATE: 201904
